FAERS Safety Report 9952857 (Version 1)
Quarter: 2014Q1

REPORT INFORMATION
  Report Type: Spontaneous
  Country: GB (occurrence: GB)
  Receive Date: 20140304
  Receipt Date: 20140304
  Transmission Date: 20141002
  Serious: Yes (Hospitalization)
  Sender: FDA-Public Use
  Company Number: PHFR2014GB001762

PATIENT
  Sex: 0

DRUGS (5)
  1. EVEROLIMUS [Suspect]
     Indication: BREAST CANCER
     Dosage: 10 MG, QD
     Route: 048
  2. EVEROLIMUS [Suspect]
     Dosage: 10 MG, QD
     Route: 048
  3. EVEROLIMUS [Suspect]
     Dosage: 5 MG, QD
     Route: 048
  4. EXEMESTANE [Suspect]
     Route: 048
  5. EXEMESTANE [Suspect]
     Route: 048

REACTIONS (9)
  - Pneumothorax [Recovering/Resolving]
  - Dyspnoea [Recovering/Resolving]
  - Dyspnoea exertional [Recovering/Resolving]
  - Cough [Recovering/Resolving]
  - Infection [Recovering/Resolving]
  - Migraine [Recovering/Resolving]
  - Fatigue [Recovering/Resolving]
  - Dysgeusia [Recovering/Resolving]
  - Decreased appetite [Recovering/Resolving]
